FAERS Safety Report 5031644-4 (Version None)
Quarter: 2006Q2

REPORT INFORMATION
  Report Type: 
  Country: None (occurrence: None)
  Receive Date: 20060616
  Receipt Date: 20060606
  Transmission Date: 20061013
  Serious: Yes (Other)
  Sender: FDA-Public Use
  Company Number: 430052K06USA

PATIENT
  Age: 39 Year
  Sex: Female
  Weight: 59.8748 kg

DRUGS (10)
  1. NOVANTRONE [Suspect]
     Indication: MULTIPLE SCLEROSIS
     Dosage: NOT REPORTED, 1 IN 3 MONTHS, INTRAVENOUS (NOT OTHERWISE SPECIFIED); 10 MG/M2; 8 MG/M2, NOT REPORTED,
     Route: 042
     Dates: start: 20060118, end: 20060118
  2. NOVANTRONE [Suspect]
     Indication: MULTIPLE SCLEROSIS
     Dosage: NOT REPORTED, 1 IN 3 MONTHS, INTRAVENOUS (NOT OTHERWISE SPECIFIED); 10 MG/M2; 8 MG/M2, NOT REPORTED,
     Route: 042
     Dates: start: 20050717
  3. NOVANTRONE [Suspect]
     Indication: MULTIPLE SCLEROSIS
     Dosage: NOT REPORTED, 1 IN 3 MONTHS, INTRAVENOUS (NOT OTHERWISE SPECIFIED); 10 MG/M2; 8 MG/M2, NOT REPORTED,
     Route: 042
     Dates: start: 20060419
  4. REBIF [Concomitant]
  5. PROVIGIL [Concomitant]
  6. TOPAMAX [Concomitant]
  7. ALLEGRA [Concomitant]
  8. SKELAXIN [Concomitant]
  9. VESICARE [Concomitant]
  10. BIRTH CONTROL PILLS (ORAL CONTRACEPTIVE NOS) [Concomitant]

REACTIONS (1)
  - EJECTION FRACTION DECREASED [None]
